FAERS Safety Report 10104143 (Version 1)
Quarter: 2014Q2

REPORT INFORMATION
  Report Type: Spontaneous
  Country: US (occurrence: US)
  Receive Date: 20140424
  Receipt Date: 20140424
  Transmission Date: 20141212
  Serious: No
  Sender: FDA-Public Use
  Company Number: US-009507513-1404USA002605

PATIENT
  Age: 2 Year
  Sex: Male

DRUGS (4)
  1. CLARITIN ORAL SOLUTION [Suspect]
     Indication: SEASONAL ALLERGY
     Dosage: UNK, UNKNOWN
     Route: 048
     Dates: start: 2014
  2. CLARITIN ORAL SOLUTION [Suspect]
     Indication: RHINORRHOEA
  3. CLARITIN ORAL SOLUTION [Suspect]
     Indication: OCULAR HYPERAEMIA
  4. CLARITIN ORAL SOLUTION [Suspect]
     Indication: SNEEZING

REACTIONS (2)
  - Condition aggravated [Unknown]
  - Drug ineffective [Unknown]
